FAERS Safety Report 15533064 (Version 1)
Quarter: 2018Q4

REPORT INFORMATION
  Report Type: Spontaneous
  Country: US (occurrence: US)
  Receive Date: 20181019
  Receipt Date: 20181019
  Transmission Date: 20190205
  Serious: Yes (Hospitalization)
  Sender: FDA-Public Use
  Company Number: US-ALLERGAN-1760011US

PATIENT
  Age: 78 Year
  Sex: Female
  Weight: 63.49 kg

DRUGS (1)
  1. INFED [Suspect]
     Active Substance: IRON DEXTRAN
     Indication: ANAEMIA
     Dosage: 20 ML, UNK
     Route: 065

REACTIONS (15)
  - Dyspnoea [Unknown]
  - Urinary incontinence [Unknown]
  - Anaphylactic shock [Unknown]
  - Eye movement disorder [Unknown]
  - Carotid pulse decreased [Unknown]
  - Nausea [Unknown]
  - Vomiting [Unknown]
  - Cardiac arrest [Unknown]
  - Altered state of consciousness [Unknown]
  - Malaise [Unknown]
  - Chest discomfort [Unknown]
  - Dyspepsia [Unknown]
  - Hypersensitivity [Unknown]
  - Pyrexia [Unknown]
  - Seizure [Unknown]

NARRATIVE: CASE EVENT DATE: 20170919
